FAERS Safety Report 4286763-7 (Version None)
Quarter: 2004Q1

REPORT INFORMATION
  Report Type: 
  Country: None (occurrence: None)
  Receive Date: 20040204
  Receipt Date: 20040126
  Transmission Date: 20041129
  Serious: Yes (Hospitalization)
  Sender: FDA-Public Use
  Company Number: US-SHR-03-009628

PATIENT
  Age: 62 Year
  Sex: Female
  Weight: 72.6 kg

DRUGS (13)
  1. BETASERON [Suspect]
     Indication: MULTIPLE SCLEROSIS
     Dosage: 8M IU , EVERY 2D SUBCUTANEOUS
     Route: 058
     Dates: start: 19940401, end: 20000101
  2. BETASERON [Suspect]
     Indication: MULTIPLE SCLEROSIS
     Dosage: 8M IU , EVERY 2D SUBCUTANEOUS
     Route: 058
     Dates: start: 20010101, end: 20030610
  3. BETASERON [Suspect]
     Indication: MULTIPLE SCLEROSIS
     Dosage: 8M IU , EVERY 2D SUBCUTANEOUS
     Route: 058
     Dates: start: 20031107
  4. DETROL [Concomitant]
  5. CLONAZEPAM [Concomitant]
  6. LIPITOR [Concomitant]
  7. FOLIC ACID [Concomitant]
  8. CALCIUM (CALCIUM) [Concomitant]
  9. AMINOPYRINE (AMIMNOPHENAZONE) [Concomitant]
  10. SKELAXIN [Concomitant]
  11. KLONOPIN [Concomitant]
  12. DITROPAN /SCH/(OXYBUTYNIN HYDROCHLORIDE) [Concomitant]
  13. MVI /USA/ (VITAMINS NOS) [Concomitant]

REACTIONS (15)
  - ALPHA HAEMOLYTIC STREPTOCOCCAL INFECTION [None]
  - ANAEMIA [None]
  - BLOOD CULTURE POSITIVE [None]
  - CELLULITIS [None]
  - CORONARY ARTERY OCCLUSION [None]
  - COUGH [None]
  - DEEP VEIN THROMBOSIS [None]
  - ENDOCARDITIS [None]
  - INDURATION [None]
  - PYREXIA [None]
  - RED BLOOD CELL SEDIMENTATION RATE INCREASED [None]
  - SUBACUTE ENDOCARDITIS [None]
  - TRANSFERRIN SATURATION DECREASED [None]
  - UPPER RESPIRATORY TRACT INFECTION [None]
  - URINARY TRACT INFECTION [None]
